FAERS Safety Report 4399130-2 (Version None)
Quarter: 2004Q2

REPORT INFORMATION
  Report Type: 
  Country: None (occurrence: None)
  Receive Date: 20040621
  Receipt Date: 20040323
  Transmission Date: 20050107
  Serious: Yes (Other)
  Sender: FDA-Public Use
  Company Number: USA-2004-0014024

PATIENT
  Sex: Female

DRUGS (7)
  1. OXYCONTIN [Suspect]
  2. CLONOPIN [Concomitant]
  3. HEROIN [Concomitant]
  4. COCAINE [Concomitant]
  5. MARIJUANA [Concomitant]
  6. XANAX [Concomitant]
  7. ALCOHOL [Concomitant]

REACTIONS (1)
  - POLYSUBSTANCE ABUSE [None]
